FAERS Safety Report 7929274-7 (Version None)
Quarter: 2011Q4

REPORT INFORMATION
  Report Type: 
  Country: None (occurrence: None)
  Receive Date: 20111121
  Receipt Date: 20111115
  Transmission Date: 20120403
  Serious: Yes (Other)
  Sender: FDA-Public Use
  Company Number: US-BIOGENIDEC-201328

PATIENT
  Age: 48 Year
  Sex: Female

DRUGS (10)
  1. XANAX [Concomitant]
  2. CAL-MAG CITRATE [Concomitant]
  3. AVONEX [Suspect]
     Indication: MULTIPLE SCLEROSIS
     Route: 030
     Dates: start: 20080201
  4. NAPRELAN [Concomitant]
     Indication: PROPHYLAXIS
  5. GREEN TEA EXTRACT [Concomitant]
  6. EPA (EICOSAPENTAENOIC ACID) [Concomitant]
  7. MELATONIN [Concomitant]
  8. L-CARNITINE [Concomitant]
  9. SACRO-B [Concomitant]
  10. AVONEX [Suspect]
     Route: 030
     Dates: start: 20030901

REACTIONS (3)
  - COLON CANCER [None]
  - RASH GENERALISED [None]
  - BREAST CANCER METASTATIC [None]
